FAERS Safety Report 21910209 (Version 1)
Quarter: 2023Q1

REPORT INFORMATION
  Report Type: Spontaneous
  Country: US (occurrence: US)
  Receive Date: 20230125
  Receipt Date: 20230125
  Transmission Date: 20230417
  Serious: No
  Sender: FDA-Public Use
  Company Number: US-ALLERGAN-2202009US

PATIENT
  Sex: Female

DRUGS (1)
  1. BOTOX [Suspect]
     Active Substance: ONABOTULINUMTOXINA
     Indication: Headache
     Dosage: 200 UNITS, SINGLE
     Dates: start: 202107, end: 202107

REACTIONS (3)
  - Off label use [Unknown]
  - Paraesthesia [Unknown]
  - Drug ineffective [Unknown]
